FAERS Safety Report 4575957-9 (Version None)
Quarter: 2005Q1

REPORT INFORMATION
  Report Type: 
  Country: None (occurrence: None)
  Receive Date: 20050204
  Receipt Date: 20050126
  Transmission Date: 20050727
  Serious: Yes (Death, Hospitalization, Other)
  Sender: FDA-Public Use
  Company Number: 2005-01-1989

PATIENT
  Age: 7 Week
  Sex: Male

DRUGS (4)
  1. INTERFERON ALFA-2B [Suspect]
     Indication: HAEMANGIOMA
     Dosage: 3 MIU/M^2 QD
  2. INTERFERON ALFA-2B [Suspect]
     Indication: NEONATAL DISORDER
     Dosage: 3 MIU/M^2 QD
  3. PREDNISOLONE [Suspect]
     Indication: HAEMANGIOMA
     Dosage: 4 MG/KG ORAL
     Route: 048
  4. PREDNISOLONE [Suspect]
     Indication: NEONATAL DISORDER
     Dosage: 4 MG/KG ORAL
     Route: 048

REACTIONS (9)
  - ANGIOPATHY [None]
  - CARDIOMYOPATHY NEONATAL [None]
  - HEPATIC FUNCTION ABNORMAL [None]
  - HEPATIC NECROSIS [None]
  - LIVER DISORDER [None]
  - NEONATAL DISORDER [None]
  - NEONATAL HEPATOMEGALY [None]
  - POST PROCEDURAL COMPLICATION [None]
  - VENTRICULAR HYPERTROPHY [None]
